FAERS Safety Report 7323091-7 (Version None)
Quarter: 2011Q1

REPORT INFORMATION
  Report Type: 
  Country: None (occurrence: None)
  Receive Date: 20110301
  Receipt Date: 20110217
  Transmission Date: 20110831
  Serious: Yes (Hospitalization, Other)
  Sender: FDA-Public Use
  Company Number: PHHY2010DE51356

PATIENT
  Sex: Female
  Weight: 54 kg

DRUGS (6)
  1. BAYOTENSIN [Concomitant]
     Dosage: UNK
     Dates: start: 20090925
  2. ESTRADIOL [Concomitant]
     Indication: HORMONE REPLACEMENT THERAPY
     Dosage: 25?G
     Dates: start: 20100817
  3. BLOPRESS PLUS [Concomitant]
     Indication: HYPERTENSION
     Dosage: 1-0-1/2 IRREGULAR INTAKE
     Dates: start: 20090924
  4. FEMARA [Suspect]
     Indication: BREAST CANCER
     Dosage: 2.5 MG, QD
     Route: 048
     Dates: start: 20060901, end: 20091023
  5. AMLODIPINE [Concomitant]
     Indication: HYPERTENSION
  6. METOPROLOL SUCCINATE [Concomitant]
     Indication: HYPERTENSION
     Dosage: BID
     Dates: start: 20080301

REACTIONS (14)
  - CHEST DISCOMFORT [None]
  - NAUSEA [None]
  - ANXIETY [None]
  - HYPERTENSIVE CRISIS [None]
  - DIZZINESS [None]
  - EMPHYSEMA [None]
  - PALPITATIONS [None]
  - FATIGUE [None]
  - BLOOD PRESSURE INCREASED [None]
  - ARRHYTHMIA [None]
  - ARTERIOSCLEROSIS CORONARY ARTERY [None]
  - FEELING COLD [None]
  - TREMOR [None]
  - DYSPNOEA [None]
